FAERS Safety Report 10367798 (Version 2)
Quarter: 2014Q3

REPORT INFORMATION
  Report Type: Spontaneous
  Country: ES (occurrence: ES)
  Receive Date: 20140807
  Receipt Date: 20140822
  Transmission Date: 20150326
  Serious: Yes (Death, Hospitalization)
  Sender: FDA-Public Use
  Company Number: ES-PFIZER INC-2014219401

PATIENT
  Age: 79 Year
  Sex: Female

DRUGS (7)
  1. FELDENE-D [Suspect]
     Active Substance: PIROXICAM
     Indication: PAIN
     Dosage: 20 MG, 1X/DAY
     Route: 048
     Dates: start: 20130710, end: 20130825
  2. ZOLPIDEM [Concomitant]
     Active Substance: ZOLPIDEM\ZOLPIDEM TARTRATE
     Indication: INSOMNIA
     Dosage: UNK
     Route: 048
     Dates: start: 20130710, end: 20130825
  3. ACABEL [Interacting]
     Active Substance: LORNOXICAM
     Indication: PAIN
     Dosage: 8 MG, 1X/DAY
     Route: 048
     Dates: start: 20130821, end: 20130825
  4. ESPIDIFEN [Interacting]
     Active Substance: IBUPROFEN
     Indication: PAIN
     Dosage: 600 MG, 2X/DAY
     Route: 048
     Dates: start: 20130710, end: 20130825
  5. OMEPRAZOLE. [Concomitant]
     Active Substance: OMEPRAZOLE
     Indication: PROPHYLAXIS AGAINST GASTROINTESTINAL ULCER
     Dosage: 20 MG, 1X/DAY
     Route: 048
     Dates: start: 2011
  6. ENALAPRIL [Concomitant]
     Active Substance: ENALAPRIL
     Indication: HYPERTENSION
     Dosage: 10 MG, 1X/DAY
     Route: 048
     Dates: start: 2002
  7. LORMETAZEPAM [Concomitant]
     Active Substance: LORMETAZEPAM
     Indication: ANXIETY
     Dosage: UNK
     Route: 048
     Dates: start: 20130710, end: 20130825

REACTIONS (3)
  - Drug interaction [Fatal]
  - Peptic ulcer perforation [Recovered/Resolved]
  - Peritonitis [Fatal]

NARRATIVE: CASE EVENT DATE: 20130825
